FAERS Safety Report 17716893 (Version 1)
Quarter: 2020Q2

REPORT INFORMATION
  Report Type: Spontaneous
  Country: US (occurrence: US)
  Receive Date: 20200428
  Receipt Date: 20200428
  Transmission Date: 20200714
  Serious: No
  Sender: FDA-Public Use
  Company Number: US-SA-2020SA106742

PATIENT
  Age: 46 Year
  Sex: Male
  Weight: 124.71 kg

DRUGS (1)
  1. XYZAL [Suspect]
     Active Substance: LEVOCETIRIZINE DIHYDROCHLORIDE
     Indication: HYPERSENSITIVITY
     Dosage: UNK UNK, QD
     Route: 065

REACTIONS (4)
  - Eye pruritus [Unknown]
  - Nasal congestion [Unknown]
  - Throat irritation [Unknown]
  - Therapeutic response decreased [Unknown]
